FAERS Safety Report 25942395 (Version 1)
Quarter: 2025Q4

REPORT INFORMATION
  Report Type: Spontaneous
  Country: CH (occurrence: CH)
  Receive Date: 20251021
  Receipt Date: 20251021
  Transmission Date: 20260117
  Serious: Yes (Life-Threatening, Hospitalization, Other)
  Sender: ROCHE
  Company Number: CH-ROCHE-10000367206

PATIENT
  Age: 47 Year
  Sex: Female
  Weight: 38 kg

DRUGS (7)
  1. CELLCEPT [Suspect]
     Active Substance: MYCOPHENOLATE MOFETIL
     Indication: Prophylaxis against transplant rejection
     Dosage: DOSE: ALWAYS 2X 500 MG
     Route: 048
     Dates: start: 20091227
  2. CELLCEPT [Suspect]
     Active Substance: MYCOPHENOLATE MOFETIL
     Dosage: DOSE: 1X 500 MG
     Route: 048
     Dates: start: 20250915
  3. PREDNISONE [Concomitant]
     Active Substance: PREDNISONE
  4. PROGRAF [Concomitant]
     Active Substance: TACROLIMUS
  5. SPORANOX [Concomitant]
     Active Substance: ITRACONAZOLE
  6. VALTREX [Concomitant]
     Active Substance: VALACYCLOVIR HYDROCHLORIDE
  7. CERTICAN [Concomitant]
     Active Substance: EVEROLIMUS

REACTIONS (2)
  - Lung transplant rejection [Unknown]
  - Colorectal cancer [Unknown]

NARRATIVE: CASE EVENT DATE: 20240216
